FAERS Safety Report 5116363-8 (Version None)
Quarter: 2006Q3

REPORT INFORMATION
  Report Type: 
  Country: None (occurrence: None)
  Receive Date: 20060925
  Receipt Date: 20060914
  Transmission Date: 20061208
  Serious: Yes (Disabling)
  Sender: FDA-Public Use
  Company Number: 14739

PATIENT
  Age: 62 Year
  Sex: Male

DRUGS (1)
  1. AMIODARONE HCL [Suspect]
     Dosage: 1200 MG QD

REACTIONS (7)
  - HEMIANOPIA [None]
  - KERATOPATHY [None]
  - LENS DISORDER [None]
  - OPTIC ATROPHY [None]
  - OPTIC ISCHAEMIC NEUROPATHY [None]
  - OPTIC NERVE CUPPING [None]
  - VISUAL FIELD DEFECT [None]
